FAERS Safety Report 18839413 (Version 1)
Quarter: 2021Q1

REPORT INFORMATION
  Report Type: Report from Study
  Country: US (occurrence: US)
  Receive Date: 20210203
  Receipt Date: 20210203
  Transmission Date: 20210419
  Serious: No
  Sender: FDA-Public Use
  Company Number: US-EXELIXIS-CABO-20033427

PATIENT
  Sex: Male
  Weight: 104.31 kg

DRUGS (14)
  1. DOXYCYCLINE. [Concomitant]
     Active Substance: DOXYCYCLINE
  2. METOPROLOL SUCCINATE. [Concomitant]
     Active Substance: METOPROLOL SUCCINATE
  3. AMIODARON [Concomitant]
     Active Substance: AMIODARONE
  4. CABOMETYX [Suspect]
     Active Substance: CABOZANTINIB S-MALATE
     Indication: RENAL CANCER
     Dosage: 60 MG, QD
     Route: 048
     Dates: start: 202004, end: 202009
  5. HYDROCORTISONE. [Concomitant]
     Active Substance: HYDROCORTISONE
  6. DAILY VITE [Concomitant]
     Active Substance: VITAMINS
  7. WARFARIN [Concomitant]
     Active Substance: WARFARIN
  8. PANTOPRAZOLE [Concomitant]
     Active Substance: PANTOPRAZOLE
  9. APRISO [Concomitant]
     Active Substance: MESALAMINE
  10. MEMANTINE. [Concomitant]
     Active Substance: MEMANTINE
  11. LOSARTAN POTASSIUM. [Concomitant]
     Active Substance: LOSARTAN POTASSIUM
  12. TRAMADOL. [Concomitant]
     Active Substance: TRAMADOL
  13. TERAZOSIN [Concomitant]
     Active Substance: TERAZOSIN HYDROCHLORIDE
  14. IPRATROPIUM BROMIDE. [Concomitant]
     Active Substance: IPRATROPIUM BROMIDE

REACTIONS (3)
  - Blister [Unknown]
  - Blood pressure decreased [Unknown]
  - Oral mucosal blistering [Unknown]
